FAERS Safety Report 16305857 (Version 1)
Quarter: 2019Q2

REPORT INFORMATION
  Report Type: Spontaneous
  Country: US (occurrence: US)
  Receive Date: 20190512
  Receipt Date: 20190512
  Transmission Date: 20190711
  Serious: Yes (Other)
  Sender: FDA-Public Use
  Company Number: None

PATIENT
  Age: 83 Year
  Sex: Male
  Weight: 63 kg

DRUGS (5)
  1. FINASTERIDE 5MG TABLETS [Concomitant]
     Active Substance: FINASTERIDE
  2. HYDROCODONE/ACETAMINOPHEN 5-325 [Concomitant]
     Active Substance: ACETAMINOPHEN\HYDROCODONE
  3. FLUOCINONIDE 0.05% CREAM 60GM [Suspect]
     Active Substance: FLUOCINONIDE
     Indication: RASH
     Dosage: ?          QUANTITY:1 TUBE;?
     Route: 061
     Dates: start: 20190509, end: 20190510
  4. VITAMINS [Concomitant]
     Active Substance: VITAMINS
  5. STOOL SOFTENER DUCOLAX [Concomitant]

REACTIONS (5)
  - Blister [None]
  - Skin burning sensation [None]
  - Pain of skin [None]
  - Pruritus [None]
  - Insomnia [None]

NARRATIVE: CASE EVENT DATE: 20190509
